FAERS Safety Report 7392199-2 (Version None)
Quarter: 2011Q2

REPORT INFORMATION
  Report Type: 
  Country: None (occurrence: None)
  Receive Date: 20110404
  Receipt Date: 20110325
  Transmission Date: 20111010
  Serious: Yes (Life-Threatening, Hospitalization)
  Sender: FDA-Public Use
  Company Number: B0709991A

PATIENT
  Age: 11 Year
  Sex: Female

DRUGS (2)
  1. STEROIDS [Concomitant]
  2. SALBUTAMOL [Suspect]
     Indication: ASTHMA
     Route: 065

REACTIONS (11)
  - PROLONGED EXPIRATION [None]
  - TACHYCARDIA [None]
  - RESPIRATORY ACIDOSIS [None]
  - HYPERCAPNIA [None]
  - DRUG INEFFECTIVE [None]
  - FATIGUE [None]
  - SOMNOLENCE [None]
  - WHEEZING [None]
  - TACHYPNOEA [None]
  - RESPIRATORY DISTRESS [None]
  - CYANOSIS [None]
